FAERS Safety Report 7888471-X (Version None)
Quarter: 2011Q4

REPORT INFORMATION
  Report Type: 
  Country: None (occurrence: None)
  Receive Date: 20111103
  Receipt Date: 20111025
  Transmission Date: 20120403
  Serious: Yes (Other)
  Sender: FDA-Public Use
  Company Number: PHEH2011US06372

PATIENT
  Sex: Female

DRUGS (7)
  1. TRAMADOL HCL [Concomitant]
  2. EXJADE [Suspect]
     Indication: HAEMOCHROMATOSIS
     Dosage: 1 DF PER DAY
     Route: 048
     Dates: start: 20070124
  3. ABILIFY [Concomitant]
  4. NEUPOGEN [Concomitant]
  5. BUPROPION HCL [Concomitant]
     Dosage: 300 MG PER DAY
     Route: 048
  6. PROCRIT [Concomitant]
  7. VITAMIN D [Concomitant]

REACTIONS (1)
  - ROAD TRAFFIC ACCIDENT [None]
